FAERS Safety Report 4709205-3 (Version None)
Quarter: 2005Q3

REPORT INFORMATION
  Report Type: 
  Country: None (occurrence: None)
  Receive Date: 20050708
  Receipt Date: 20050628
  Transmission Date: 20060218
  Serious: Yes (Life-Threatening, Hospitalization)
  Sender: FDA-Public Use
  Company Number: US-JNJFOC-20050602634

PATIENT
  Sex: Male
  Weight: 85.73 kg

DRUGS (7)
  1. IBUPROFEN [Suspect]
     Indication: PAIN
     Dosage: 600-800MG TID-QID
  2. CLOZAPINE [Suspect]
     Indication: AFFECTIVE DISORDER
     Route: 049
  3. DEPAKOTE [Concomitant]
  4. ZOLOFT [Concomitant]
  5. SEROQUEL [Concomitant]
  6. PREVACID [Concomitant]
  7. NIFEDIPINE [Concomitant]

REACTIONS (2)
  - GLOMERULONEPHRITIS ACUTE [None]
  - RENAL FAILURE [None]
